FAERS Safety Report 8831526 (Version 3)
Quarter: 2012Q4

REPORT INFORMATION
  Report Type: 
  Country: JP (occurrence: JP)
  Receive Date: 20121008
  Receipt Date: 20121017
  Transmission Date: 20130627
  Serious: Yes (Life-Threatening)
  Sender: FDA-Public Use
  Company Number: JP-GLAXOSMITHKLINE-B0835720A

PATIENT
  Age: 44 None
  Sex: Female
  Weight: 51 kg

DRUGS (9)
  1. VALTREX [Suspect]
     Indication: HERPES ZOSTER
     Dosage: 1000MG Three times per day
     Route: 048
     Dates: start: 20120930, end: 20121002
  2. PREDNISOLONE [Concomitant]
     Indication: ANTI-NEUTROPHIL CYTOPLASMIC ANTIBODY POSITIVE VASCULITIS
     Dosage: 4MG Per day
     Route: 048
  3. ADJUST A [Concomitant]
     Dosage: 40MG Three times per day
     Route: 048
  4. ASPARA POTASSIUM [Concomitant]
     Dosage: 300MG Twice per day
     Route: 048
  5. OLMETEC [Concomitant]
     Dosage: 20MG Twice per day
     Route: 048
  6. ADALAT-CR [Concomitant]
     Dosage: 20MG Three times per day
     Route: 048
  7. METHYCOBAL [Concomitant]
     Dosage: 1IUAX Three times per day
     Route: 048
     Dates: start: 20120929, end: 20121002
  8. ROSEOL [Concomitant]
     Dosage: 1IUAX Three times per day
     Route: 048
     Dates: start: 20120929, end: 20121002
  9. ATENENTOIN [Concomitant]
     Dosage: 1IUAX Three times per day
     Route: 048
     Dates: start: 20120929, end: 20121002

REACTIONS (6)
  - Convulsion [Recovered/Resolved]
  - Altered state of consciousness [Recovered/Resolved]
  - Encephalopathy [Unknown]
  - Renal disorder [Unknown]
  - Loss of consciousness [Unknown]
  - Electrolyte imbalance [Unknown]
